FAERS Safety Report 15116299 (Version 2)
Quarter: 2018Q3

REPORT INFORMATION
  Report Type: Spontaneous
  Country: CO (occurrence: CO)
  Receive Date: 20180706
  Receipt Date: 20180713
  Transmission Date: 20181010
  Serious: Yes (Hospitalization, Other)
  Sender: FDA-Public Use
  Company Number: CO-PFIZER INC-2018270048

PATIENT
  Age: 77 Year
  Sex: Female

DRUGS (4)
  1. CARDIOASPIRINE [Concomitant]
     Active Substance: ASPIRIN
  2. LIPITOR [Suspect]
     Active Substance: ATORVASTATIN CALCIUM
     Dosage: UNK
     Dates: start: 20180518, end: 2018
  3. CALCIBON /00751501/ [Concomitant]
     Dosage: 800 MG, DAILY
  4. AMLODIPINE BESILATE W/BISOPROLOL FUMARATE [Concomitant]
     Dosage: UNK
     Dates: start: 2017

REACTIONS (1)
  - Guillain-Barre syndrome [Recovering/Resolving]

NARRATIVE: CASE EVENT DATE: 20180524
